FAERS Safety Report 9276661 (Version 1)
Quarter: 2013Q2

REPORT INFORMATION
  Report Type: Spontaneous
  Country: US (occurrence: None)
  Receive Date: 20130501
  Receipt Date: 20130501
  Transmission Date: 20140414
  Serious: Yes (Hospitalization)
  Sender: FDA-Public Use
  Company Number: US-SEPTODONT - 201301036

PATIENT
  Sex: 0

DRUGS (1)
  1. MARCAINE [Suspect]
     Route: 004

REACTIONS (2)
  - Swelling face [None]
  - Contusion [None]
